FAERS Safety Report 7002241-6 (Version None)
Quarter: 2010Q3

REPORT INFORMATION
  Report Type: 
  Country: None (occurrence: None)
  Receive Date: 20100920
  Receipt Date: 20100708
  Transmission Date: 20110219
  Serious: No
  Sender: FDA-Public Use
  Company Number: US-ASTRAZENECA-2010SE31864

PATIENT
  Age: 11793 Day
  Sex: Female
  Weight: 54.4 kg

DRUGS (1)
  1. SEROQUEL [Suspect]
     Indication: INSOMNIA
     Route: 048
     Dates: start: 20100201, end: 20100703

REACTIONS (2)
  - DRUG DOSE OMISSION [None]
  - INSOMNIA [None]
